FAERS Safety Report 11884560 (Version 2)
Quarter: 2016Q1

REPORT INFORMATION
  Report Type: Spontaneous
  Country: US (occurrence: US)
  Receive Date: 20160104
  Receipt Date: 20160129
  Transmission Date: 20160526
  Serious: Yes (Other)
  Sender: FDA-Public Use
  Company Number: US-BEH-2015057250

PATIENT
  Sex: Female
  Weight: 55 kg

DRUGS (3)
  1. HIZENTRA [Suspect]
     Active Substance: HUMAN IMMUNOGLOBULIN G
     Indication: SELECTIVE IGG SUBCLASS DEFICIENCY
     Dosage: 1 GM 5 ML VIAL  (STARTED IN 2012)
     Route: 058
  2. HIZENTRA [Suspect]
     Active Substance: HUMAN IMMUNOGLOBULIN G
     Indication: LICHEN PLANUS
     Dosage: 1 GM 5 ML VIAL  (STARTED IN 2012)
     Route: 058
  3. HIZENTRA [Suspect]
     Active Substance: HUMAN IMMUNOGLOBULIN G
     Indication: SELECTIVE IGG SUBCLASS DEFICIENCY
     Dosage: 1 GM 5 ML VIAL  (STARTED IN 2012)
     Route: 058

REACTIONS (1)
  - Staphylococcal infection [Recovered/Resolved]
